FAERS Safety Report 17291944 (Version 1)
Quarter: 2020Q1

REPORT INFORMATION
  Report Type: Spontaneous
  Country: CN (occurrence: CN)
  Receive Date: 20200121
  Receipt Date: 20200121
  Transmission Date: 20200409
  Serious: Yes (Hospitalization)
  Sender: FDA-Public Use
  Company Number: CN-BAYER-2019-218395

PATIENT
  Age: 46 Year
  Sex: Female
  Weight: 62 kg

DRUGS (2)
  1. ERIKA [Suspect]
     Active Substance: CALCIUM CARBONATE\MAGNESIUM CARBONATE
     Indication: COLON CANCER
     Dosage: 200 MG, QD
     Route: 041
     Dates: start: 20190830, end: 20190908
  2. STIVARGA [Suspect]
     Active Substance: REGORAFENIB
     Indication: COLON CANCER
     Dosage: 80 MG, QD
     Route: 048
     Dates: start: 20190830, end: 20190908

REACTIONS (2)
  - Rash [Recovered/Resolved]
  - Off label use [None]

NARRATIVE: CASE EVENT DATE: 20190830
